FAERS Safety Report 5585841-X (Version None)
Quarter: 2008Q1

REPORT INFORMATION
  Report Type: 
  Country: None (occurrence: None)
  Receive Date: 20080109
  Receipt Date: 20071231
  Transmission Date: 20080703
  Serious: Yes (Hospitalization)
  Sender: FDA-Public Use
  Company Number: CA-SANOFI-SYNTHELABO-F01200701725

PATIENT
  Sex: Male

DRUGS (6)
  1. LEUCOVORIN [Suspect]
     Route: 042
  2. FLUOROURACIL [Suspect]
     Route: 040
  3. BEVACIZUMAB [Suspect]
     Route: 042
  4. GLYBURIDE [Concomitant]
     Dosage: UNK
     Dates: start: 20070502
  5. OXALIPLATIN [Suspect]
     Indication: COLON CANCER
     Route: 042
  6. CITALOPRAM [Concomitant]
     Dosage: UNK
     Dates: start: 20070410

REACTIONS (1)
  - PORTAL VEIN THROMBOSIS [None]
